FAERS Safety Report 12761311 (Version 2)
Quarter: 2016Q4

REPORT INFORMATION
  Report Type: Spontaneous
  Country: US (occurrence: US)
  Receive Date: 20160920
  Receipt Date: 20161018
  Transmission Date: 20170207
  Serious: No
  Sender: FDA-Public Use
  Company Number: US-ASTRAZENECA-2016SE57458

PATIENT
  Age: 44 Year
  Sex: Female
  Weight: 95.2 kg

DRUGS (1)
  1. NEXIUM 24HR [Suspect]
     Active Substance: ESOMEPRAZOLE MAGNESIUM
     Indication: GASTROOESOPHAGEAL REFLUX DISEASE
     Dosage: 2 DF, UNK (IN THE MORNING)
     Route: 048
     Dates: start: 201604

REACTIONS (6)
  - Eructation [Unknown]
  - Flatulence [Unknown]
  - Product use issue [Unknown]
  - Poor quality drug administered [Unknown]
  - Abdominal distension [Unknown]
  - Product container issue [Unknown]
